FAERS Safety Report 8252784-2 (Version None)
Quarter: 2012Q2

REPORT INFORMATION
  Report Type: 
  Country: None (occurrence: None)
  Receive Date: 20120402
  Receipt Date: 20110406
  Transmission Date: 20120825
  Serious: No
  Sender: FDA-Public Use
  Company Number: US-ABBOTT-11P-163-0804399-00

PATIENT
  Sex: Male
  Weight: 95.454 kg

DRUGS (8)
  1. VALACICLOVIR HYDROCHLORIDE [Concomitant]
     Indication: ORAL HERPES
     Dosage: DAILY DOSE:  UNKNOWN, FREQUENCY: AS NEEDED
     Route: 065
  2. ERGOCALCIFEROL [Concomitant]
     Indication: MEDICAL DIET
     Dosage: DAILY DOSE:  UNKNOWN
     Route: 065
  3. CARBAMAZEPINE [Concomitant]
     Indication: CONVULSION
     Dosage: DAILY DOSE:  UNKNOWN
     Route: 065
  4. ASCORBIC ACID AND ERGOCALCIFEROL AND FOLIC ACID AND NICOTINAMIDE AND P [Concomitant]
     Indication: MEDICAL DIET
     Dosage: DAILY DOSE:  UNKNOWN
     Route: 065
  5. HYDROCHLOROTHIAZIDE AND LISINOPRIL [Concomitant]
     Indication: HYPERTENSION
     Dosage: DAILY DOSE:  UNKNOWN
     Route: 065
  6. SIMVASTATIN [Concomitant]
     Indication: BLOOD CHOLESTEROL INCREASED
     Dosage: DAILY DOSE:  UNKNOWN
     Route: 065
  7. ZOLPIDEM TARTRATE [Concomitant]
     Indication: SLEEP DISORDER
     Dosage: DAILY DOSE:  UNKNOWN, FREQUENCY: AS NEEDED
     Route: 065
  8. TESTOSTERONE [Suspect]
     Indication: BLOOD TESTOSTERONE DECREASED
     Dosage: DAILY DOSE:  UNKNOWN, AS USED: 50 MILLIGRAM(S)
     Route: 062
     Dates: start: 20110328

REACTIONS (1)
  - DRUG ADMINISTERED AT INAPPROPRIATE SITE [None]
